FAERS Safety Report 23128028 (Version 2)
Quarter: 2023Q4

REPORT INFORMATION
  Report Type: Report from Study
  Country: PL (occurrence: None)
  Receive Date: 20231031
  Receipt Date: 20231208
  Transmission Date: 20240110
  Serious: Yes (Hospitalization)
  Sender: FDA-Public Use
  Company Number: PL-ROCHE-3444337

PATIENT
  Age: 13 Year
  Sex: Female

DRUGS (5)
  1. OCRELIZUMAB [Suspect]
     Active Substance: OCRELIZUMAB
     Indication: Relapsing-remitting multiple sclerosis
     Dosage: ON 06/SEP/2023 SHE RECEIVED 600 MG /520 ML PRIOR TO AE AND SAE.
     Route: 042
     Dates: start: 20210519
  2. METHYLPREDNISOLONE [Suspect]
     Active Substance: METHYLPREDNISOLONE
     Indication: Prophylaxis
     Dosage: START DATE OF MOST RECENT DOSE OF STUDY DRUG PRIOR TO AE 06-OCT-2023 (100 MG) AND PRIOR TO SAE 06-SE
     Route: 042
  3. DICOPEG [Concomitant]
     Indication: Constipation
     Dosage: ONGOING - YES
     Route: 048
     Dates: start: 20211122
  4. ACYCLOVIR [Concomitant]
     Active Substance: ACYCLOVIR
     Indication: Oral herpes
     Dosage: ONGOING- YES
     Route: 048
     Dates: start: 20231005
  5. INNOFER [SACCHARATED IRON OXIDE] [Concomitant]
     Indication: Prophylaxis
     Dosage: ONGOING -YES
     Route: 048
     Dates: start: 20230907

REACTIONS (1)
  - Neutropenia [Recovered/Resolved]

NARRATIVE: CASE EVENT DATE: 20231018
